FAERS Safety Report 10812134 (Version 1)
Quarter: 2015Q1

REPORT INFORMATION
  Report Type: Spontaneous
  Country: US (occurrence: None)
  Receive Date: 20150212
  Receipt Date: 20150212
  Transmission Date: 20150721
  Serious: Yes (Hospitalization)
  Sender: FDA-Public Use
  Company Number: None

PATIENT
  Age: 66 Year
  Sex: Female
  Weight: 68.04 kg

DRUGS (2)
  1. AMPYRA [Suspect]
     Active Substance: DALFAMPRIDINE
     Indication: MULTIPLE SCLEROSIS
     Dosage: 1 TABLET TWICE DAILY TAKEN BY MOUTH
     Route: 048
  2. AMPYRA [Suspect]
     Active Substance: DALFAMPRIDINE
     Dosage: 1 TABLET TWICE DAILY TAKEN BY MOUTH
     Route: 048

REACTIONS (7)
  - Amnesia [None]
  - Bruxism [None]
  - Eye movement disorder [None]
  - Discomfort [None]
  - Generalised tonic-clonic seizure [None]
  - Protrusion tongue [None]
  - Unresponsive to stimuli [None]

NARRATIVE: CASE EVENT DATE: 20150208
